FAERS Safety Report 5844700-5 (Version None)
Quarter: 2008Q3

REPORT INFORMATION
  Report Type: 
  Country: None (occurrence: None)
  Receive Date: 20080814
  Receipt Date: 20080708
  Transmission Date: 20090109
  Serious: No
  Sender: FDA-Public Use
  Company Number: US-BAYER-200828681NA

PATIENT
  Sex: Male
  Weight: 68 kg

DRUGS (2)
  1. ULTRAVIST (PHARMACY BULK) [Suspect]
     Indication: COMPUTERISED TOMOGRAM ABDOMEN
     Route: 042
  2. RADICAT [Concomitant]
     Indication: PREMEDICATION

REACTIONS (1)
  - URTICARIA [None]
